FAERS Safety Report 18632419 (Version 1)
Quarter: 2020Q4

REPORT INFORMATION
  Report Type: Spontaneous
  Country: US (occurrence: US)
  Receive Date: 20201218
  Receipt Date: 20201218
  Transmission Date: 20210114
  Serious: No
  Sender: FDA-Public Use
  Company Number: US-HORIZON-2020HZN02476

PATIENT
  Age: 38 Year
  Sex: Female
  Weight: 64.4 kg

DRUGS (5)
  1. FERROUS SULFATE. [Concomitant]
     Active Substance: FERROUS SULFATE
  2. METHIMAZOLE. [Concomitant]
     Active Substance: METHIMAZOLE
  3. VITAMIN C [Concomitant]
     Active Substance: ASCORBIC ACID
  4. SELENIUM [Concomitant]
     Active Substance: SELENIUM
  5. TEPEZZA [Suspect]
     Active Substance: TEPROTUMUMAB-TRBW
     Indication: TOXIC GOITRE
     Dosage: EVERY 3 WEEKS
     Route: 050
     Dates: start: 20201123

REACTIONS (4)
  - Chest discomfort [Unknown]
  - Flushing [Unknown]
  - Headache [Unknown]
  - Dizziness [Unknown]

NARRATIVE: CASE EVENT DATE: 20201214
